FAERS Safety Report 9379720 (Version 2)
Quarter: 2013Q3

REPORT INFORMATION
  Report Type: Report from Study
  Country: BE (occurrence: BE)
  Receive Date: 20130702
  Receipt Date: 20130726
  Transmission Date: 20140515
  Serious: Yes (Hospitalization)
  Sender: FDA-Public Use
  Company Number: BE-ROCHE-781062

PATIENT
  Age: 30 Year
  Sex: Female
  Weight: 82.5 kg

DRUGS (17)
  1. TRASTUZUMAB EMTANSINE [Suspect]
     Indication: BREAST CANCER
     Dosage: LAST DOSE PRIOR TO SAE: 31 MAY 2011: 297MG
     Route: 042
  2. FLUOROURACIL [Suspect]
     Indication: BREAST CANCER
     Dosage: DATE OF LAST DOSE PRIOR TO SAE: 19 APRIL 2011: 900MG
     Route: 042
  3. EPIRUBICIN [Suspect]
     Indication: BREAST CANCER
     Dosage: DOSE 180, DATE OF LAST DOSE PRIOR TO SAE 19 APRIL 2011: 180MG
     Route: 042
  4. CYCLOPHOSPHAMIDE [Suspect]
     Indication: BREAST CANCER
     Dosage: DATE OF LAST DOSE OF CYCLOPHOSPHAMIDE WAS 19 APRIL 2011: 960MG
     Route: 042
  5. BRONCHO-VAXOM [Concomitant]
     Indication: INFECTION
     Route: 065
     Dates: end: 201104
  6. ZOLADEX [Concomitant]
     Route: 065
     Dates: start: 20110308, end: 20120430
  7. ZOLPIDEM [Concomitant]
     Indication: INSOMNIA
     Route: 065
     Dates: start: 20110314, end: 20110614
  8. PSEUDOEPHEDRINE [Concomitant]
     Indication: NASOPHARYNGITIS
     Route: 065
     Dates: start: 20110330, end: 20110705
  9. CODEINE [Concomitant]
     Indication: NASOPHARYNGITIS
     Route: 065
     Dates: start: 20110330, end: 20110705
  10. PHENERGAN [Concomitant]
     Indication: NASOPHARYNGITIS
     Route: 065
     Dates: start: 20110330, end: 20110705
  11. PREDNISONE [Concomitant]
     Indication: NASOPHARYNGITIS
     Route: 065
     Dates: start: 20110330, end: 20110705
  12. BELLADONNA [Concomitant]
     Indication: NASOPHARYNGITIS
     Route: 065
     Dates: start: 20110330, end: 20110705
  13. DAFALGAN [Concomitant]
     Indication: CHILLS
     Route: 065
     Dates: start: 20110601, end: 20110802
  14. PERDOLAN [Concomitant]
     Indication: INFLUENZA LIKE ILLNESS
     Route: 065
     Dates: start: 20110512, end: 20110515
  15. PRANOX [Concomitant]
     Indication: INFECTION
     Route: 065
     Dates: start: 20110606, end: 20110610
  16. MUCO RHINATHIOL [Concomitant]
     Indication: COUGH
     Route: 065
     Dates: start: 20110621, end: 20110630
  17. METARELAX [Concomitant]
     Indication: NASOPHARYNGITIS
     Route: 065
     Dates: start: 20110621, end: 20120814

REACTIONS (1)
  - Upper respiratory tract infection [Recovered/Resolved]
